FAERS Safety Report 10395654 (Version 1)
Quarter: 2014Q1

REPORT INFORMATION
  Report Type: Spontaneous
  Country: US (occurrence: None)
  Receive Date: 20130724
  Receipt Date: 20130724
  Transmission Date: 20141002
  Serious: Yes (Other)
  Sender: FDA-Public Use
  Company Number: PHEH2012US008565

PATIENT
  Age: 76 Year
  Sex: Female

DRUGS (1)
  1. GLEEVEC (IMATINIB) TABLET, 400MG [Suspect]
     Indication: GASTROINTESTINAL STROMAL TUMOUR
     Route: 048
     Dates: start: 20120405

REACTIONS (7)
  - Neoplasm progression [None]
  - Feeling abnormal [None]
  - Swelling [None]
  - Swelling face [None]
  - Eye swelling [None]
  - Pruritus [None]
  - Malignant neoplasm progression [None]
